FAERS Safety Report 10949642 (Version 1)
Quarter: 2015Q1

REPORT INFORMATION
  Report Type: Spontaneous
  Country: US (occurrence: None)
  Receive Date: 20150323
  Receipt Date: 20150323
  Transmission Date: 20150721
  Serious: No
  Sender: FDA-Public Use
  Company Number: None

PATIENT
  Age: 57 Year

DRUGS (2)
  1. CAPECITABINE. [Suspect]
     Active Substance: CAPECITABINE
     Indication: COLON CANCER
     Dosage: 1500 MG (MON-FRI) TWICE DAILY ORALLY
     Route: 048
     Dates: start: 20150213, end: 20150302
  2. RADIATION THERAPY [Concomitant]
     Active Substance: RADIATION THERAPY

REACTIONS (4)
  - Paraesthesia [None]
  - Fall [None]
  - Asthenia [None]
  - Muscle twitching [None]

NARRATIVE: CASE EVENT DATE: 20150226
